FAERS Safety Report 9616938 (Version 2)
Quarter: 2013Q4

REPORT INFORMATION
  Report Type: Spontaneous
  Country: US (occurrence: US)
  Receive Date: 20131011
  Receipt Date: 20131031
  Transmission Date: 20140711
  Serious: Yes (Other)
  Sender: FDA-Public Use
  Company Number: US-TEVA-437570USA

PATIENT
  Age: 14 Year
  Sex: Female

DRUGS (8)
  1. QVAR [Suspect]
     Indication: ASTHMA
     Dosage: 2 PUFFS PER DAY
     Dates: start: 201305
  2. QVAR [Suspect]
     Dosage: 1 PUFF/DAY
     Dates: start: 201308
  3. INDOMETHACIN [Suspect]
  4. XOPENOX [Concomitant]
     Indication: ASTHMA
     Dosage: PRN
  5. RIBOFLAVIN [Concomitant]
  6. MAGNESIUM [Concomitant]
  7. CO-ENZYME Q10 [Concomitant]
  8. B-COMPLEX [Concomitant]

REACTIONS (5)
  - Bronchospasm [Recovered/Resolved]
  - Headache [Not Recovered/Not Resolved]
  - Sleep disorder [Not Recovered/Not Resolved]
  - Fatigue [Not Recovered/Not Resolved]
  - Chest discomfort [Recovered/Resolved]
